FAERS Safety Report 6603733-1 (Version None)
Quarter: 2010Q1

REPORT INFORMATION
  Report Type: 
  Country: None (occurrence: None)
  Receive Date: 20100226
  Receipt Date: 20090226
  Transmission Date: 20100710
  Serious: Yes (Hospitalization)
  Sender: FDA-Public Use
  Company Number: A0762837A

PATIENT
  Age: 27 Year
  Sex: Female
  Weight: 213.6 kg

DRUGS (15)
  1. LAMOTRIGINE [Suspect]
     Indication: BIPOLAR DISORDER
     Dosage: 150MG AT NIGHT
     Dates: start: 20080118, end: 20081119
  2. PSYCHO-THERAPEUTIC DRUGS [Concomitant]
  3. UNKNOWN MEDICATION [Concomitant]
  4. GEODON [Concomitant]
     Dosage: 80MG TWICE PER DAY
  5. COGENTIN [Concomitant]
     Dosage: 2MG TWICE PER DAY
  6. TRAZODONE HCL [Concomitant]
     Dosage: 100MG AT NIGHT
  7. VISTARIL [Concomitant]
     Dosage: 50MG AT NIGHT
  8. WELLBUTRIN XL [Concomitant]
     Dosage: 150MG IN THE MORNING
  9. INSULIN [Concomitant]
  10. GEMFIBROZIL [Concomitant]
  11. SIMVASTATIN [Concomitant]
  12. MELOXICAM [Concomitant]
  13. LORATADINE [Concomitant]
  14. ACTOS [Concomitant]
  15. MORPHINE [Concomitant]

REACTIONS (2)
  - RASH [None]
  - STOMATITIS [None]
